FAERS Safety Report 7628987-4 (Version None)
Quarter: 2011Q3

REPORT INFORMATION
  Report Type: 
  Country: None (occurrence: None)
  Receive Date: 20110722
  Receipt Date: 20110316
  Transmission Date: 20111222
  Serious: No
  Sender: FDA-Public Use
  Company Number: US-MYLANLABS-2011S1002699

PATIENT
  Age: 62 Year
  Sex: Female

DRUGS (4)
  1. CLONIDINE HYDROCHLORIDE [Suspect]
     Indication: BLOOD PRESSURE INCREASED
     Dosage: PATIENT REPORTEDLY SPLIT THE 0.2MG TABLET IN HALF.
     Route: 048
     Dates: start: 20061202, end: 20110207
  2. CLONIDINE HYDROCHLORIDE [Suspect]
     Route: 048
     Dates: start: 20110207
  3. BENADRYL [Concomitant]
  4. CIPROFLOXACIN HCL [Concomitant]
     Dates: start: 20110219

REACTIONS (8)
  - PAIN OF SKIN [None]
  - ERYTHEMA [None]
  - HEADACHE [None]
  - FLUSHING [None]
  - FEELING HOT [None]
  - CHILLS [None]
  - PYREXIA [None]
  - HYPERSENSITIVITY [None]
